FAERS Safety Report 20831221 (Version 3)
Quarter: 2022Q2

REPORT INFORMATION
  Report Type: Report from Study
  Country: CH (occurrence: CH)
  Receive Date: 20220515
  Receipt Date: 20220523
  Transmission Date: 20220721
  Serious: Yes (Hospitalization)
  Sender: FDA-Public Use
  Company Number: CH-ABBVIE-22K-151-4392671-00

PATIENT
  Age: 78 Year
  Sex: Female

DRUGS (4)
  1. CARBIDOPA\LEVODOPA [Suspect]
     Active Substance: CARBIDOPA\LEVODOPA
     Indication: Parkinson^s disease
     Route: 050
     Dates: start: 20190701
  2. CARBIDOPA\LEVODOPA [Suspect]
     Active Substance: CARBIDOPA\LEVODOPA
     Dosage: MD: 4 ML, CRD: 3.9 ML/H, CRN: 2.5 ML/H, ED: 1.9 ML?24H THERAPY
     Route: 050
     Dates: start: 20220419, end: 2022
  3. CARBIDOPA\LEVODOPA [Suspect]
     Active Substance: CARBIDOPA\LEVODOPA
     Dosage: MD: 4 ML, CRD: 3.9 ML/H, CRN: 2.9 ML/H, ED: 1.9 ML?24 H THERAPY
     Route: 050
     Dates: start: 2022, end: 20220514
  4. CARBIDOPA\LEVODOPA [Suspect]
     Active Substance: CARBIDOPA\LEVODOPA
     Dosage: MD: 4 ML, CRD: 3.9 ML/H, CRN: 3.1 ML/H, ED: 1.9 ML?24 H THERAPY
     Route: 050
     Dates: start: 20220514

REACTIONS (4)
  - Gastrointestinal inflammation [Not Recovered/Not Resolved]
  - Fistula [Not Recovered/Not Resolved]
  - Fatigue [Recovered/Resolved]
  - Akinesia [Recovered/Resolved]

NARRATIVE: CASE EVENT DATE: 20220514
